FAERS Safety Report 19093760 (Version 1)
Quarter: 2021Q2

REPORT INFORMATION
  Report Type: Report from Study
  Country: CA (occurrence: CA)
  Receive Date: 20210405
  Receipt Date: 20210405
  Transmission Date: 20210717
  Serious: Yes (Hospitalization, Other)
  Sender: FDA-Public Use
  Company Number: CA-TAKEDA-2021TUS019773

PATIENT
  Age: 43 Year
  Sex: Female

DRUGS (2)
  1. VEDOLIZUMAB [Suspect]
     Active Substance: VEDOLIZUMAB
     Indication: COLITIS ULCERATIVE
     Dosage: 300 MILLIGRAM
     Route: 042
     Dates: start: 20201118
  2. IMURAN [Concomitant]
     Active Substance: AZATHIOPRINE
     Dosage: 100 MILLIGRAM

REACTIONS (4)
  - Fatigue [Not Recovered/Not Resolved]
  - Asthenia [Not Recovered/Not Resolved]
  - Swelling [Not Recovered/Not Resolved]
  - Loss of consciousness [Unknown]
